FAERS Safety Report 6856646-4 (Version None)
Quarter: 2010Q3

REPORT INFORMATION
  Report Type: 
  Country: None (occurrence: None)
  Receive Date: 20100719
  Receipt Date: 20100712
  Transmission Date: 20110219
  Serious: Yes (Death)
  Sender: FDA-Public Use
  Company Number: JP-MERCK-1007USA01701

PATIENT
  Age: 74 Year

DRUGS (5)
  1. JANUVIA [Suspect]
     Indication: DIABETES MELLITUS
     Route: 048
  2. CALBLOCK [Concomitant]
     Indication: HYPERTENSION
     Route: 048
  3. IRBETAN [Concomitant]
     Indication: HYPERTENSION
     Route: 048
  4. DEPAS [Concomitant]
     Route: 048
  5. URSO 250 [Concomitant]
     Route: 048

REACTIONS (1)
  - DEATH [None]
